FAERS Safety Report 7466029-4 (Version None)
Quarter: 2011Q2

REPORT INFORMATION
  Report Type: 
  Country: None (occurrence: None)
  Receive Date: 20110509
  Receipt Date: 20100706
  Transmission Date: 20111010
  Serious: No
  Sender: FDA-Public Use
  Company Number: US-ALEXION-A201000619

PATIENT
  Sex: Female
  Weight: 72.562 kg

DRUGS (6)
  1. RAMIPRIL [Concomitant]
     Dosage: 5 MG, QD
  2. GLIPIZIDE [Concomitant]
     Dosage: 25, UNK
  3. FOLIC ACID [Concomitant]
  4. JANUVIA [Concomitant]
     Dosage: 25
  5. TRICOR [Concomitant]
     Dosage: 48
  6. SOLIRIS [Suspect]
     Indication: PAROXYSMAL NOCTURNAL HAEMOGLOBINURIA
     Dosage: UNK
     Route: 042
     Dates: start: 20080219

REACTIONS (1)
  - HAEMOGLOBIN DECREASED [None]
